FAERS Safety Report 4632169-8 (Version None)
Quarter: 2005Q2

REPORT INFORMATION
  Report Type: 
  Country: None (occurrence: None)
  Receive Date: 20050331
  Receipt Date: 20040324
  Transmission Date: 20051028
  Serious: Yes (Other)
  Sender: FDA-Public Use
  Company Number: 200411468BCC

PATIENT
  Age: 29 Year
  Sex: Male
  Weight: 154.223 kg

DRUGS (2)
  1. ALEVE [Suspect]
     Indication: BACK PAIN
     Dosage: 440 MG, TID, ORAL
     Route: 048
     Dates: start: 20040323
  2. ALEVE [Suspect]
     Indication: INJURY
     Dosage: 440 MG, TID, ORAL
     Route: 048
     Dates: start: 20040323

REACTIONS (3)
  - ABDOMINAL PAIN UPPER [None]
  - DIARRHOEA [None]
  - DIARRHOEA HAEMORRHAGIC [None]
